FAERS Safety Report 26054054 (Version 1)
Quarter: 2025Q4

REPORT INFORMATION
  Report Type: Spontaneous
  Country: VE (occurrence: VE)
  Receive Date: 20251117
  Receipt Date: 20251117
  Transmission Date: 20260118
  Serious: Yes (Hospitalization)
  Sender: PFIZER
  Company Number: VE-PFIZER INC-PV202500011612

PATIENT
  Age: 79 Year
  Sex: Male

DRUGS (1)
  1. VYNDAMAX [Suspect]
     Active Substance: TAFAMIDIS
     Dosage: 61 MG

REACTIONS (5)
  - Pneumonia mycoplasmal [Unknown]
  - Pyrexia [Unknown]
  - Chills [Unknown]
  - Tachycardia [Unknown]
  - Fluid retention [Unknown]
